FAERS Safety Report 18394700 (Version 1)
Quarter: 2020Q4

REPORT INFORMATION
  Report Type: Spontaneous
  Country: US (occurrence: US)
  Receive Date: 20201016
  Receipt Date: 20201016
  Transmission Date: 20210114
  Serious: Yes (Other)
  Sender: FDA-Public Use
  Company Number: US-ELI_LILLY_AND_COMPANY-US202010002713

PATIENT
  Age: 45 Year
  Sex: Male

DRUGS (3)
  1. TALTZ [Suspect]
     Active Substance: IXEKIZUMAB
     Dosage: 160 MG, OTHER
     Route: 065
  2. TALTZ [Suspect]
     Active Substance: IXEKIZUMAB
     Indication: PRODUCT USED FOR UNKNOWN INDICATION
     Dosage: UNK, UNKNOWN
     Route: 065
     Dates: start: 201803
  3. TALTZ [Suspect]
     Active Substance: IXEKIZUMAB
     Dosage: UNK, MONTHLY (1/M)
     Route: 065

REACTIONS (4)
  - Seizure [Unknown]
  - Aggression [Unknown]
  - Influenza [Unknown]
  - Psoriasis [Unknown]

NARRATIVE: CASE EVENT DATE: 2018
